FAERS Safety Report 7156257-X (Version None)
Quarter: 2010Q4

REPORT INFORMATION
  Report Type: 
  Country: None (occurrence: None)
  Receive Date: 20101214
  Receipt Date: 20101202
  Transmission Date: 20110411
  Serious: Yes (Hospitalization)
  Sender: FDA-Public Use
  Company Number: JP-JNJFOC-20101201775

PATIENT
  Sex: Female
  Weight: 60 kg

DRUGS (9)
  1. RISPERDAL [Suspect]
     Indication: SCHIZOPHRENIA
     Route: 048
  2. LEVOTOMIN [Suspect]
     Indication: SCHIZOPHRENIA
     Route: 048
  3. CARBAMAZEPINE [Suspect]
     Indication: SCHIZOPHRENIA
     Route: 048
  4. LITHIUM CARBONATE [Suspect]
     Indication: SCHIZOPHRENIA
     Route: 048
  5. BENZALIN [Concomitant]
     Indication: INSOMNIA
     Route: 048
  6. LIPITOR [Concomitant]
     Indication: HYPERCHOLESTEROLAEMIA
     Route: 048
  7. SENNOSIDE [Concomitant]
     Indication: CONSTIPATION
     Route: 048
  8. TASMOLIN [Concomitant]
     Indication: PARKINSONISM
     Route: 048
  9. URSODIOL [Concomitant]
     Indication: HEPATIC FUNCTION ABNORMAL
     Route: 048

REACTIONS (4)
  - CARDIAC FAILURE [None]
  - NEUROLEPTIC MALIGNANT SYNDROME [None]
  - RENAL FAILURE [None]
  - RENAL FAILURE ACUTE [None]
